FAERS Safety Report 8375243-5 (Version None)
Quarter: 2012Q2

REPORT INFORMATION
  Report Type: 
  Country: None (occurrence: None)
  Receive Date: 20120522
  Receipt Date: 20120515
  Transmission Date: 20120825
  Serious: Yes (Hospitalization)
  Sender: FDA-Public Use
  Company Number: US-BIOGENIDEC-2011BI020352

PATIENT
  Age: 45 Year
  Sex: Female

DRUGS (6)
  1. TYLENOL [Concomitant]
  2. LEXAPRO [Concomitant]
     Indication: AFFECTIVE DISORDER
     Route: 048
     Dates: start: 20100823
  3. AMBIEN [Concomitant]
     Indication: SLEEP DISORDER
     Route: 048
     Dates: start: 20110120
  4. TYSABRI [Suspect]
     Indication: MULTIPLE SCLEROSIS
     Route: 042
     Dates: start: 20080623
  5. PERCOCET [Concomitant]
  6. XANAX [Concomitant]
     Indication: ANXIETY

REACTIONS (3)
  - SUICIDE ATTEMPT [None]
  - CLOSTRIDIAL INFECTION [None]
  - RENAL FAILURE ACUTE [None]
